FAERS Safety Report 25994294 (Version 1)
Quarter: 2025Q4

REPORT INFORMATION
  Report Type: Report from Study
  Country: US (occurrence: None)
  Receive Date: 20251104
  Receipt Date: 20251104
  Transmission Date: 20260117
  Serious: Yes (Hospitalization)
  Sender: UCB
  Company Number: US-UCBSA-2025046067

PATIENT
  Age: 77 Year

DRUGS (3)
  1. BRIVARACETAM [Suspect]
     Active Substance: BRIVARACETAM
     Indication: Epilepsy
     Dosage: 25 MILLIGRAM, 2X/DAY (BID), TOTAL 250 MILLIGRAMS DAILY
  2. BRIVARACETAM [Suspect]
     Active Substance: BRIVARACETAM
     Dosage: 100 MILLIGRAM, 2X/DAY (BID)-TOTAL 250 MILLIGRAMS DAILY
  3. NAYZILAM [Suspect]
     Active Substance: MIDAZOLAM
     Indication: Epilepsy
     Dosage: 5MG SPRAY INTO EACH NOSTRIL AS NEEDED (PRN)

REACTIONS (3)
  - Encephalitis [Not Recovered/Not Resolved]
  - Off label use [Unknown]
  - Overdose [Unknown]
